FAERS Safety Report 4752997-8 (Version None)
Quarter: 2005Q3

REPORT INFORMATION
  Report Type: 
  Country: None (occurrence: None)
  Receive Date: 20050826
  Receipt Date: 20050513
  Transmission Date: 20060218
  Serious: Yes (Hospitalization)
  Sender: FDA-Public Use
  Company Number: US-MERCK-0505USA01938

PATIENT
  Age: 62 Year
  Sex: Male
  Weight: 77 kg

DRUGS (11)
  1. VIOXX [Suspect]
     Indication: PSORIATIC ARTHROPATHY
     Route: 048
     Dates: start: 19990101, end: 20030101
  2. TOPROL-XL [Concomitant]
     Route: 065
     Dates: start: 20011201
  3. PATANOL [Concomitant]
     Route: 065
  4. ENBREL [Concomitant]
     Route: 065
     Dates: start: 19990801, end: 20030101
  5. METHOTREXATE [Concomitant]
     Route: 065
     Dates: start: 19990505, end: 20031201
  6. PREDNISONE [Concomitant]
     Route: 065
  7. DARVOCET-N 100 [Concomitant]
     Route: 065
  8. PERCOCET [Concomitant]
     Route: 065
  9. ENALAPRIL MALEATE [Concomitant]
     Route: 065
     Dates: start: 20011201, end: 20020401
  10. ALTACE [Concomitant]
     Route: 065
     Dates: start: 20020415, end: 20020101
  11. FOLIC ACID [Concomitant]
     Route: 065

REACTIONS (12)
  - ACUTE MYOCARDIAL INFARCTION [None]
  - ANXIETY [None]
  - BLOOD CHOLESTEROL INCREASED [None]
  - CORONARY ARTERY DISEASE [None]
  - DEPRESSION [None]
  - HAEMATOMA [None]
  - HYPERLIPIDAEMIA [None]
  - PERICARDIAL EFFUSION [None]
  - PERICARDITIS [None]
  - PSORIASIS [None]
  - STRESS [None]
  - VENTRICULAR TACHYCARDIA [None]
